FAERS Safety Report 4803174-3 (Version None)
Quarter: 2005Q4

REPORT INFORMATION
  Report Type: 
  Country: None (occurrence: None)
  Receive Date: 20051013
  Receipt Date: 20050927
  Transmission Date: 20060501
  Serious: Yes (Other)
  Sender: FDA-Public Use
  Company Number: US_0509122353

PATIENT
  Age: 38 Year
  Sex: Female

DRUGS (1)
  1. GLUCAGON [Suspect]
     Indication: HYPOGLYCAEMIA

REACTIONS (6)
  - CHEILITIS [None]
  - ECZEMA [None]
  - EPIDERMAL NECROSIS [None]
  - GLUCAGONOMA [None]
  - NECROLYTIC MIGRATORY ERYTHEMA [None]
  - THERAPY NON-RESPONDER [None]
